FAERS Safety Report 8249202-7 (Version None)
Quarter: 2012Q1

REPORT INFORMATION
  Report Type: 
  Country: None (occurrence: None)
  Receive Date: 20120315
  Receipt Date: 20120201
  Transmission Date: 20120608
  Serious: Yes (Other)
  Sender: FDA-Public Use
  Company Number: 2012030967

PATIENT
  Age: 54 Year
  Sex: Male
  Weight: 214 kg

DRUGS (9)
  1. MOTRIN [Concomitant]
  2. FLUOXETINE [Concomitant]
  3. ATIVAN [Concomitant]
  4. ALBUTEROL [Concomitant]
  5. HIZENTRA [Suspect]
     Indication: IMMUNODEFICIENCY COMMON VARIABLE
     Dosage: 14 G 1X/WEEK, 14 G VIA 4 SITES OVER 1-2 HOURS SUBCUTANEOUS
     Route: 058
     Dates: start: 20120124
  6. HIZENTRA [Suspect]
     Indication: IMMUNODEFICIENCY COMMON VARIABLE
     Dosage: 2 G
  7. SYMBICORT [Concomitant]
  8. ZITHROMAX [Concomitant]
  9. FLONASE [Concomitant]

REACTIONS (1)
  - INFUSION SITE INFECTION [None]
